FAERS Safety Report 5121941-6 (Version None)
Quarter: 2006Q4

REPORT INFORMATION
  Report Type: 
  Country: None (occurrence: None)
  Receive Date: 20061003
  Receipt Date: 20060623
  Transmission Date: 20070319
  Serious: Yes (Hospitalization)
  Sender: FDA-Public Use
  Company Number: DSA_28270_2006

PATIENT
  Age: 79 Year
  Sex: Male

DRUGS (13)
  1. HERBESSER R [Suspect]
     Indication: ANGINA PECTORIS
     Dosage: 100 MG Q DAY PO
     Route: 048
     Dates: start: 20060415, end: 20060507
  2. NU-LOTAN [Suspect]
     Dosage: 25 MG Q DAY PO
     Route: 048
     Dates: start: 20060415, end: 20060507
  3. ARTIST [Suspect]
     Dosage: 1.25 MG Q DAY PO
     Route: 048
     Dates: start: 20060415, end: 20060507
  4. MAGMITT [Suspect]
     Dosage: 1.32 G Q DAY PO
     Route: 048
     Dates: start: 20060415, end: 20060507
  5. THYRADIN [Concomitant]
  6. TICLOPIDINE HCL [Concomitant]
  7. CLARITHROMYCIN [Concomitant]
  8. MUCOSOLATE [Concomitant]
  9. URINORM [Concomitant]
  10. CETILO/TRADITIONAL CHINESE MEDICINE [Concomitant]
  11. BUFFERIN [Concomitant]
  12. LANSOPRAZOLE [Concomitant]
  13. ASPIRIN [Concomitant]

REACTIONS (7)
  - DRUG ERUPTION [None]
  - DRUG HYPERSENSITIVITY [None]
  - EOSINOPHIL COUNT INCREASED [None]
  - PRURITUS [None]
  - RASH PAPULAR [None]
  - SENSORY DISTURBANCE [None]
  - SKIN DISCOLOURATION [None]
